FAERS Safety Report 5611311-6 (Version None)
Quarter: 2008Q1

REPORT INFORMATION
  Report Type: 
  Country: None (occurrence: None)
  Receive Date: 20080201
  Receipt Date: 20080122
  Transmission Date: 20080703
  Serious: Yes (Other)
  Sender: FDA-Public Use
  Company Number: US-PFIZER INC-2007096369

PATIENT
  Sex: Female

DRUGS (2)
  1. DILANTIN [Suspect]
  2. DILANTIN [Suspect]
     Dosage: TEXT:100 MG QID EVERY DAY TDD:400 MG

REACTIONS (5)
  - ANTICONVULSANT DRUG LEVEL DECREASED [None]
  - CONSTIPATION [None]
  - MUSCLE SPASTICITY [None]
  - POLYP [None]
  - RECTAL HAEMORRHAGE [None]
